FAERS Safety Report 5318922-6 (Version None)
Quarter: 2007Q2

REPORT INFORMATION
  Report Type: 
  Country: None (occurrence: None)
  Receive Date: 20070504
  Receipt Date: 20070504
  Transmission Date: 20071010
  Serious: Yes (Hospitalization)
  Sender: FDA-Public Use
  Company Number: None

PATIENT
  Sex: Male
  Weight: 88.63 kg

DRUGS (2)
  1. CYTARABINE [Suspect]
     Dosage: 1400 MG
  2. DAUNORUBICIN HCL [Suspect]
     Dosage: 540 MG

REACTIONS (11)
  - CAROTID ARTERY OCCLUSION [None]
  - CAVERNOUS SINUS THROMBOSIS [None]
  - GENERAL PHYSICAL HEALTH DETERIORATION [None]
  - HYPOTENSION [None]
  - IIIRD NERVE PARALYSIS [None]
  - LOSS OF CONSCIOUSNESS [None]
  - MASS [None]
  - MUCORMYCOSIS [None]
  - NEUTROPENIA [None]
  - SEPTIC SHOCK [None]
  - SINUSITIS FUNGAL [None]
